FAERS Safety Report 5579140-X (Version None)
Quarter: 2007Q4

REPORT INFORMATION
  Report Type: 
  Country: None (occurrence: None)
  Receive Date: 20071227
  Receipt Date: 20071227
  Transmission Date: 20080405
  Serious: Yes (Other)
  Sender: FDA-Public Use
  Company Number: None

PATIENT
  Sex: Female
  Weight: 54.54 kg

DRUGS (1)
  1. AVELOX [Suspect]
     Dosage: 400 MG SOLUTION IN 0.8% IV
     Route: 042

REACTIONS (2)
  - ERYTHEMA [None]
  - RASH [None]
